FAERS Safety Report 25299987 (Version 1)
Quarter: 2025Q2

REPORT INFORMATION
  Report Type: Spontaneous
  Country: US (occurrence: None)
  Receive Date: 20250512
  Receipt Date: 20250512
  Transmission Date: 20250717
  Serious: No
  Sender: UNICHEM
  Company Number: US-ARIS GLOBAL-UCM202404-000403

PATIENT
  Sex: Male

DRUGS (2)
  1. TADALAFIL [Suspect]
     Active Substance: TADALAFIL
     Indication: Erectile dysfunction
  2. TADALAFIL [Suspect]
     Active Substance: TADALAFIL
     Dates: start: 20240405, end: 20240407

REACTIONS (2)
  - Drug ineffective [Unknown]
  - Product use issue [Unknown]
